FAERS Safety Report 9081475 (Version 1)
Quarter: 2013Q1

REPORT INFORMATION
  Report Type: Spontaneous
  Country: US (occurrence: US)
  Receive Date: 20130130
  Receipt Date: 20130130
  Transmission Date: 20140127
  Serious: Yes (Other)
  Sender: FDA-Public Use
  Company Number: US-SANOFI-AVENTIS-2013SA005284

PATIENT
  Sex: 0

DRUGS (2)
  1. LANTUS [Suspect]
     Route: 058
  2. APIDRA [Suspect]
     Route: 058

REACTIONS (2)
  - Vision blurred [Unknown]
  - Visual field defect [Unknown]
